FAERS Safety Report 14141542 (Version 1)
Quarter: 2017Q4

REPORT INFORMATION
  Report Type: Spontaneous
  Country: US (occurrence: US)
  Receive Date: 20171030
  Receipt Date: 20171030
  Transmission Date: 20180321
  Serious: No
  Sender: FDA-Public Use
  Company Number: US-TAKEDA-2017TUS022084

PATIENT
  Sex: Female
  Weight: 57.14 kg

DRUGS (2)
  1. DEXILANT [Suspect]
     Active Substance: DEXLANSOPRAZOLE
     Indication: DYSPEPSIA
     Dosage: 60 MG, BID
     Route: 048
     Dates: start: 2017, end: 20171019
  2. DEXILANT [Suspect]
     Active Substance: DEXLANSOPRAZOLE
     Indication: HIATUS HERNIA
     Dosage: 60 MG, QD
     Route: 048
     Dates: start: 20170805

REACTIONS (1)
  - Pruritus [Not Recovered/Not Resolved]
